FAERS Safety Report 7843046-3 (Version None)
Quarter: 2011Q4

REPORT INFORMATION
  Report Type: 
  Country: None (occurrence: None)
  Receive Date: 20111020
  Receipt Date: 20111017
  Transmission Date: 20120403
  Serious: Yes (Other)
  Sender: FDA-Public Use
  Company Number: 2011SP048893

PATIENT
  Age: 24 Year
  Sex: Female
  Weight: 80 kg

DRUGS (1)
  1. DESOGESTREL AND ETHINYL ESTRADIOL [Suspect]
     Indication: CONTRACEPTION
     Dosage: QD;PO
     Route: 048
     Dates: start: 20061001

REACTIONS (6)
  - MEMORY IMPAIRMENT [None]
  - INAPPROPRIATE SCHEDULE OF DRUG ADMINISTRATION [None]
  - AMENORRHOEA [None]
  - CHOLELITHIASIS [None]
  - DRUG DOSE OMISSION [None]
  - DYSMENORRHOEA [None]
